FAERS Safety Report 11757762 (Version 1)
Quarter: 2015Q4

REPORT INFORMATION
  Report Type: Report from Study
  Country: US (occurrence: None)
  Receive Date: 20151117
  Receipt Date: 20151117
  Transmission Date: 20160304
  Serious: Yes (Other)
  Sender: FDA-Public Use
  Company Number: 2015US000154

PATIENT
  Sex: Female

DRUGS (4)
  1. ALBUTEROL (SALBUTAMOL) [Concomitant]
     Active Substance: ALBUTEROL
  2. PRO-AIR (PROACTEROL HYDROCHLORIDE) [Concomitant]
  3. GLASSIA [Suspect]
     Active Substance: .ALPHA.1-PROTEINASE INHIBITOR HUMAN
     Indication: ALPHA-1 ANTI-TRYPSIN DEFICIENCY
     Route: 042
     Dates: start: 201409
  4. SPIRIVA (TIOTROPOI, BROMIDE) [Concomitant]

REACTIONS (5)
  - Influenza like illness [None]
  - Pulmonary function test decreased [None]
  - Oxygen saturation decreased [None]
  - Pain [None]
  - Asthenia [None]
